FAERS Safety Report 18693939 (Version 3)
Quarter: 2021Q2

REPORT INFORMATION
  Report Type: Spontaneous
  Country: JP (occurrence: JP)
  Receive Date: 20210104
  Receipt Date: 20210407
  Transmission Date: 20210717
  Serious: Yes (Other)
  Sender: FDA-Public Use
  Company Number: NVSJ2020JP014369

PATIENT
  Age: 73 Year
  Sex: Male

DRUGS (1)
  1. BEOVU [Suspect]
     Active Substance: BROLUCIZUMAB-DBLL
     Indication: AGE-RELATED MACULAR DEGENERATION
     Dosage: 6 MG
     Route: 031
     Dates: start: 20201118, end: 20201118

REACTIONS (3)
  - Conjunctival hyperaemia [Recovered/Resolved]
  - Visual acuity reduced [Recovered/Resolved]
  - Polypoidal choroidal vasculopathy [Recovered/Resolved]

NARRATIVE: CASE EVENT DATE: 20201129
